FAERS Safety Report 11846932 (Version 3)
Quarter: 2016Q1

REPORT INFORMATION
  Report Type: Spontaneous
  Country: US (occurrence: US)
  Receive Date: 20151217
  Receipt Date: 20160104
  Transmission Date: 20160526
  Serious: Yes (Hospitalization)
  Sender: FDA-Public Use
  Company Number: US-UNITED THERAPEUTICS-UNT-2015-015683

PATIENT
  Age: 14 Year
  Sex: Female
  Weight: 67.98 kg

DRUGS (1)
  1. REMODULIN [Suspect]
     Active Substance: TREPROSTINIL
     Indication: PULMONARY ARTERIAL HYPERTENSION
     Dosage: 0.012 ?G/KG, CONTINUING
     Route: 058
     Dates: start: 20151208

REACTIONS (8)
  - Pain in jaw [Unknown]
  - Infusion site pain [Unknown]
  - Headache [Unknown]
  - Decreased appetite [Unknown]
  - Infusion site erythema [Unknown]
  - Hypotension [Unknown]
  - Pain in extremity [Unknown]
  - Nausea [Unknown]

NARRATIVE: CASE EVENT DATE: 201512
